FAERS Safety Report 9164115 (Version 2)
Quarter: 2013Q3

REPORT INFORMATION
  Report Type: Spontaneous
  Country: TR (occurrence: TR)
  Receive Date: 20130315
  Receipt Date: 20130912
  Transmission Date: 20140515
  Serious: Yes (Hospitalization, Other)
  Sender: FDA-Public Use
  Company Number: TR-AMGEN-TURSP2012036646

PATIENT
  Age: 55 Year
  Sex: Male

DRUGS (3)
  1. ENBREL [Suspect]
     Indication: ANKYLOSING SPONDYLITIS
     Dosage: 50 MG, WEEKLY
     Route: 058
     Dates: start: 20110614, end: 20120522
  2. ENBREL [Suspect]
     Dosage: 50 MG, QWK
     Route: 058
     Dates: end: 201211
  3. ENBREL [Suspect]
     Dosage: 50 MG, QWK
     Route: 058
     Dates: end: 201308

REACTIONS (5)
  - Hip fracture [Recovered/Resolved]
  - Foot fracture [Not Recovered/Not Resolved]
  - Fall [Unknown]
  - Tooth infection [Not Recovered/Not Resolved]
  - Lymphadenopathy [Recovering/Resolving]
